FAERS Safety Report 24419670 (Version 1)
Quarter: 2024Q4

REPORT INFORMATION
  Report Type: Spontaneous
  Country: US (occurrence: US)
  Receive Date: 20241010
  Receipt Date: 20241010
  Transmission Date: 20250115
  Serious: Yes (Other)
  Sender: STERISCIENCE PTE
  Company Number: IN-Wipro-3957227-379162

PATIENT
  Sex: Female

DRUGS (14)
  1. MYCOPHENOLATE MOFETIL [Suspect]
     Active Substance: MYCOPHENOLATE MOFETIL
     Indication: Blau syndrome
     Dosage: 250 MILLIGRAM, BID (0.5 DAY)
     Route: 065
  2. PREDNISONE [Suspect]
     Active Substance: PREDNISONE
     Indication: Blau syndrome
     Dosage: 9 MILLIGRAM, QD
     Route: 065
  3. TOFACITINIB [Suspect]
     Active Substance: TOFACITINIB
     Indication: Blau syndrome
     Dosage: 4 MILLIGRAM, QD
     Route: 065
  4. INFLIXIMAB [Suspect]
     Active Substance: INFLIXIMAB
     Indication: Blau syndrome
     Dosage: 10 MILLIGRAM/KILOGRAM, MONTHLY
     Route: 065
  5. NAPROXEN [Suspect]
     Active Substance: NAPROXEN
     Indication: Blau syndrome
     Dosage: UNK
     Route: 065
  6. METHOTREXATE [Suspect]
     Active Substance: METHOTREXATE
     Indication: Blau syndrome
     Dosage: UNK
     Route: 065
  7. CANAKINUMAB [Suspect]
     Active Substance: CANAKINUMAB
     Indication: Blau syndrome
     Dosage: UNK
     Route: 065
  8. RILONACEPT [Suspect]
     Active Substance: RILONACEPT
     Indication: Blau syndrome
     Dosage: UNK
     Route: 065
  9. ANAKINRA [Suspect]
     Active Substance: ANAKINRA
     Indication: Blau syndrome
     Dosage: UNK
     Route: 065
  10. ETANERCEPT [Suspect]
     Active Substance: ETANERCEPT
     Indication: Blau syndrome
     Dosage: UNK
     Route: 065
  11. TOCILIZUMAB [Suspect]
     Active Substance: TOCILIZUMAB
     Indication: Blau syndrome
     Dosage: UNK
     Route: 065
  12. GOLIMUMAB [Suspect]
     Active Substance: GOLIMUMAB
     Indication: Blau syndrome
     Dosage: UNK
     Route: 065
  13. HUMAN IMMUNOGLOBULIN G [Suspect]
     Active Substance: HUMAN IMMUNOGLOBULIN G
     Indication: Blau syndrome
     Dosage: UNK
     Route: 042
  14. CYCLOPHOSPHAMIDE [Suspect]
     Active Substance: CYCLOPHOSPHAMIDE
     Indication: Blau syndrome
     Dosage: 1 CYCLICAL (ONE CYCLE OF CYCLOPHOSPHAMIDE PULSE THERAPY)
     Route: 065

REACTIONS (1)
  - Drug ineffective for unapproved indication [Unknown]
